FAERS Safety Report 6537557-0 (Version None)
Quarter: 2010Q1

REPORT INFORMATION
  Report Type: 
  Country: None (occurrence: None)
  Receive Date: 20100114
  Receipt Date: 20100107
  Transmission Date: 20100710
  Serious: Yes (Hospitalization)
  Sender: FDA-Public Use
  Company Number: US-ALEXION-A201000019

PATIENT
  Sex: Female

DRUGS (2)
  1. SOLIRIS [Suspect]
     Route: 042
  2. SOLIRIS [Suspect]
     Dosage: 1200 MG, Q2W
     Route: 042
     Dates: start: 20091204, end: 20091218

REACTIONS (1)
  - APLASTIC ANAEMIA [None]
